FAERS Safety Report 16902219 (Version 2)
Quarter: 2019Q4

REPORT INFORMATION
  Report Type: Spontaneous
  Country: US (occurrence: US)
  Receive Date: 20191010
  Receipt Date: 20191121
  Transmission Date: 20200122
  Serious: No
  Sender: FDA-Public Use
  Company Number: US-ALK-ABELLO A/S-2019AA003221

PATIENT

DRUGS (3)
  1. STAE BULK 503 [Suspect]
     Active Substance: DERMATOPHAGOIDES PTERONYSSINUS
     Indication: PRODUCT USED FOR UNKNOWN INDICATION
     Dosage: DER P 1  10,000 AU/ML
  2. STERILE DILUENT FOR ALLERGENIC EXTRACT NOS [Suspect]
     Active Substance: ALBUMIN HUMAN OR GLYCERIN OR PHENOL
     Indication: PRODUCT USED FOR UNKNOWN INDICATION
  3. STAE BULK 504 [Suspect]
     Active Substance: DERMATOPHAGOIDES FARINAE
     Indication: PRODUCT USED FOR UNKNOWN INDICATION
     Dosage: DER F 1 10,000 AU/ML

REACTIONS (2)
  - Peripheral swelling [Unknown]
  - Incorrect dose administered [Unknown]
